FAERS Safety Report 18480317 (Version 1)
Quarter: 2020Q4

REPORT INFORMATION
  Report Type: Spontaneous
  Country: US (occurrence: US)
  Receive Date: 20201109
  Receipt Date: 20201109
  Transmission Date: 20210114
  Serious: No
  Sender: FDA-Public Use
  Company Number: None

PATIENT
  Age: 58 Year
  Sex: Male

DRUGS (1)
  1. CYCLOSPORINE CAP 100MG [Suspect]
     Active Substance: CYCLOSPORINE
     Route: 048
     Dates: start: 20201107

REACTIONS (3)
  - Clostridium difficile infection [None]
  - Liver transplant [None]
  - Vomiting [None]

NARRATIVE: CASE EVENT DATE: 20201107
